FAERS Safety Report 7335461-1 (Version None)
Quarter: 2011Q1

REPORT INFORMATION
  Report Type: 
  Country: None (occurrence: None)
  Receive Date: 20110307
  Receipt Date: 20110303
  Transmission Date: 20110831
  Serious: Yes (Life-Threatening)
  Sender: FDA-Public Use
  Company Number: CH-ASTRAZENECA-2011SE11671

PATIENT
  Age: 24 Year
  Sex: Male

DRUGS (4)
  1. MEFENACID [Concomitant]
  2. ATARAX [Concomitant]
  3. TEMESTA [Concomitant]
  4. SEROQUEL XR [Suspect]
     Route: 048
     Dates: start: 20110128, end: 20110128

REACTIONS (6)
  - HYPERSENSITIVITY [None]
  - ANGIOEDEMA [None]
  - DYSPHONIA [None]
  - DYSPNOEA [None]
  - PRURITUS [None]
  - ANXIETY [None]
